FAERS Safety Report 13160534 (Version 1)
Quarter: 2017Q1

REPORT INFORMATION
  Report Type: Other
  Country: US (occurrence: US)
  Receive Date: 20170129
  Receipt Date: 20170129
  Transmission Date: 20170428
  Serious: Yes (Other)
  Sender: FDA-Public Use
  Company Number: US-DEXPHARM-20170048

PATIENT
  Sex: Male

DRUGS (4)
  1. LANSOPRAZOLE. [Suspect]
     Active Substance: LANSOPRAZOLE
     Indication: GASTROOESOPHAGEAL REFLUX DISEASE
  2. ATORVASTATIN [Interacting]
     Active Substance: ATORVASTATIN
     Indication: PROPHYLAXIS
     Dosage: 20MG/DAILY
  3. ATORVASTATIN [Interacting]
     Active Substance: ATORVASTATIN
     Dosage: 10MG/DAILY
  4. ATORVASTATIN [Interacting]
     Active Substance: ATORVASTATIN
     Indication: HYPERLIPIDAEMIA
     Dosage: 20MG/DAILY

REACTIONS (1)
  - Drug interaction [Recovered/Resolved]
